FAERS Safety Report 9112592 (Version 5)
Quarter: 2013Q3

REPORT INFORMATION
  Report Type: Report from Study
  Country: JP (occurrence: JP)
  Receive Date: 20130211
  Receipt Date: 20130709
  Transmission Date: 20140515
  Serious: Yes (Death, Hospitalization, Other)
  Sender: FDA-Public Use
  Company Number: JP-JNJFOC-20130202065

PATIENT
  Age: 65 Year
  Sex: Male

DRUGS (9)
  1. SIMPONI [Suspect]
     Indication: RHEUMATOID ARTHRITIS
     Route: 058
     Dates: start: 20121010
  2. SIMPONI [Suspect]
     Indication: RHEUMATOID ARTHRITIS
     Route: 058
     Dates: start: 20121107
  3. CICLOSPORIN [Suspect]
     Indication: RHEUMATOID ARTHRITIS
     Route: 048
     Dates: end: 20121107
  4. PREDNISOLONE [Suspect]
     Indication: RHEUMATOID ARTHRITIS
     Route: 048
     Dates: end: 20121107
  5. LANSOPRAZOLE [Concomitant]
  6. LOXONIN [Concomitant]
     Indication: RHEUMATOID ARTHRITIS
     Route: 048
     Dates: end: 20121107
  7. BAKTAR [Concomitant]
     Indication: PROPHYLAXIS
     Route: 048
  8. BISPHOSPHONATE [Concomitant]
     Indication: OSTEOPOROSIS PROPHYLAXIS
  9. WARFARIN [Concomitant]
     Indication: ATRIAL FIBRILLATION

REACTIONS (4)
  - Acute respiratory distress syndrome [Fatal]
  - Interstitial lung disease [Fatal]
  - Cytomegalovirus infection [Fatal]
  - Gastrointestinal haemorrhage [Not Recovered/Not Resolved]
